FAERS Safety Report 18683748 (Version 2)
Quarter: 2021Q1

REPORT INFORMATION
  Report Type: Spontaneous
  Country: US (occurrence: US)
  Receive Date: 20201230
  Receipt Date: 20210107
  Transmission Date: 20210419
  Serious: No
  Sender: FDA-Public Use
  Company Number: US-PFIZER INC-2020512364

PATIENT
  Age: 27 Year
  Sex: Female

DRUGS (1)
  1. XELJANZ XR [Suspect]
     Active Substance: TOFACITINIB CITRATE
     Dosage: 11 MG
     Dates: start: 20201217

REACTIONS (4)
  - Oropharyngeal pain [Unknown]
  - Energy increased [Unknown]
  - Nausea [Unknown]
  - Product residue present [Unknown]

NARRATIVE: CASE EVENT DATE: 202012
